FAERS Safety Report 12483501 (Version 1)
Quarter: 2016Q2

REPORT INFORMATION
  Report Type: Report from Study
  Country: JP (occurrence: JP)
  Receive Date: 20160621
  Receipt Date: 20160621
  Transmission Date: 20160815
  Serious: Yes (Death, Disabling)
  Sender: FDA-Public Use
  Company Number: JP-AMGEN-JPNCT2015104263

PATIENT
  Age: 71 Year
  Sex: Female
  Weight: 56 kg

DRUGS (21)
  1. BACTRAMIN [Concomitant]
     Active Substance: SULFAMETHOXAZOLE\TRIMETHOPRIM
     Dosage: 2 DF, UNK
     Route: 048
  2. VANCOMYCIN [Concomitant]
     Active Substance: VANCOMYCIN
     Indication: FEBRILE NEUTROPENIA
     Dosage: 0.5 TO 1 MG, AS NECESSARY
     Route: 041
     Dates: start: 20150412
  3. PREDONINE [Concomitant]
     Active Substance: PREDNISOLONE\PREDNISOLONE ACETATE\PREDNISOLONE SODIUM SUCCINATE
     Indication: ORGANISING PNEUMONIA
     Dosage: 40 TO 60 MG, UNK
     Route: 048
     Dates: start: 20150730
  4. SOLU-MEDROL [Concomitant]
     Active Substance: METHYLPREDNISOLONE SODIUM SUCCINATE
     Dosage: 1 G, UNK
     Route: 042
     Dates: start: 20150806
  5. DARBEPOETIN ALFA [Suspect]
     Active Substance: DARBEPOETIN ALFA
     Indication: MYELODYSPLASTIC SYNDROME
     Dosage: 240 MUG, QWK
     Route: 058
     Dates: start: 20150123, end: 20150807
  6. LASTET S [Concomitant]
     Indication: MYELODYSPLASTIC SYNDROME
     Dosage: 50 MG, UNK
     Route: 048
     Dates: start: 20150812
  7. CRAVIT [Concomitant]
     Active Substance: LEVOFLOXACIN
     Indication: FEBRILE NEUTROPENIA
     Dosage: 500 MG, UNK
     Route: 048
     Dates: start: 20150416
  8. ALOSITOL [Concomitant]
     Active Substance: ALLOPURINOL
     Dosage: 200 MG, UNK
     Route: 048
  9. LENDORMIN [Concomitant]
     Active Substance: BROTIZOLAM
     Dosage: 0.125 MG, UNK
     Route: 048
     Dates: start: 20150709
  10. NAIXAN [Concomitant]
     Active Substance: NAPROXEN SODIUM
     Dosage: 100 MG, UNK
     Route: 048
     Dates: start: 2015
  11. DIFLUCAN [Concomitant]
     Active Substance: FLUCONAZOLE
     Dosage: 200 MG, UNK
     Route: 048
     Dates: start: 20150806
  12. GRAN [Concomitant]
     Active Substance: FILGRASTIM
     Indication: MYELODYSPLASTIC SYNDROME
     Dosage: 75 MUG, AS NECESSARY
     Route: 065
     Dates: start: 20150513
  13. MAXIPIME [Concomitant]
     Active Substance: CEFEPIME HYDROCHLORIDE
     Indication: FEBRILE NEUTROPENIA
     Dosage: 4 G, AS NECESSARY
     Route: 042
     Dates: start: 20150410
  14. NEORAL [Concomitant]
     Active Substance: CYCLOSPORINE
     Indication: MYELODYSPLASTIC SYNDROME
     Dosage: 100 MG, UNK
     Route: 048
  15. NEXIUM [Concomitant]
     Active Substance: ESOMEPRAZOLE MAGNESIUM
     Dosage: 20 MG, UNK
     Route: 048
     Dates: start: 20150528
  16. CIRCANETTEN [Concomitant]
     Active Substance: KERATIN\SENNA LEAF
     Indication: HAEMORRHOIDS
     Dosage: 6 DF, UNK
     Route: 048
     Dates: start: 20150821
  17. VFEND [Concomitant]
     Active Substance: VORICONAZOLE
     Indication: FEBRILE NEUTROPENIA
     Dosage: 400 MG, UNK
     Route: 048
     Dates: start: 20150414
  18. PRIMOBOLAN-DEPOT [Concomitant]
     Active Substance: METHENOLONE ENANTHATE
     Indication: MYELODYSPLASTIC SYNDROME
     Dosage: 20 MG, UNK
     Route: 048
  19. STARASID [Concomitant]
     Active Substance: CYTARABINE OCFOSFATE
     Indication: MYELODYSPLASTIC SYNDROME
     Dosage: 300 MG, UNK
     Route: 048
     Dates: start: 20150812
  20. MEROPEN [Concomitant]
     Active Substance: MEROPENEM
     Indication: FEBRILE NEUTROPENIA
     Dosage: 2 G, AS NECESSARY
     Route: 041
     Dates: start: 20150412
  21. AMBISOME [Concomitant]
     Active Substance: AMPHOTERICIN B
     Indication: FEBRILE NEUTROPENIA
     Dosage: 200 MG, AS NECESSARY
     Route: 041
     Dates: start: 20150416

REACTIONS (2)
  - Organising pneumonia [Recovering/Resolving]
  - Death [Fatal]

NARRATIVE: CASE EVENT DATE: 20150807
